FAERS Safety Report 16155865 (Version 2)
Quarter: 2019Q2

REPORT INFORMATION
  Report Type: Report from Study
  Country: CA (occurrence: CA)
  Receive Date: 20190404
  Receipt Date: 20190423
  Transmission Date: 20190711
  Serious: Yes (Other)
  Sender: FDA-Public Use
  Company Number: CA-ROCHE-2291103

PATIENT
  Sex: Female

DRUGS (2)
  1. ACTEMRA [Suspect]
     Active Substance: TOCILIZUMAB
     Dosage: ONGOING: YES
     Route: 042
     Dates: start: 20190205
  2. ACTEMRA [Suspect]
     Active Substance: TOCILIZUMAB
     Indication: RHEUMATOID ARTHRITIS
     Dosage: ONGOING: YES
     Route: 042
     Dates: start: 20190205

REACTIONS (5)
  - Diarrhoea [Not Recovered/Not Resolved]
  - Otitis externa [Unknown]
  - Abdominal pain upper [Unknown]
  - Haemorrhoids [Unknown]
  - Internal haemorrhage [Unknown]
